FAERS Safety Report 15170983 (Version 1)
Quarter: 2018Q3

REPORT INFORMATION
  Report Type: Spontaneous
  Country: US (occurrence: US)
  Receive Date: 20180622
  Receipt Date: 20180622
  Transmission Date: 20181010
  Serious: Yes (Disabling, Other)
  Sender: FDA-Public Use
  Company Number: None

PATIENT
  Age: 50 Year
  Sex: Female
  Weight: 81 kg

DRUGS (4)
  1. FLUTICASONE. [Suspect]
     Active Substance: FLUTICASONE
     Indication: PULMONARY CONGESTION
     Route: 045
     Dates: start: 20180301, end: 20180501
  2. FLUTICASONE. [Suspect]
     Active Substance: FLUTICASONE
     Indication: HYPERSENSITIVITY
     Route: 045
     Dates: start: 20180301, end: 20180501
  3. LOSARTAN. [Concomitant]
     Active Substance: LOSARTAN
  4. SALINE NASAL SPRAY [Concomitant]
     Active Substance: SODIUM CHLORIDE

REACTIONS (3)
  - Burning sensation [None]
  - Epistaxis [None]
  - Inflammation [None]

NARRATIVE: CASE EVENT DATE: 20180301
